FAERS Safety Report 9400349 (Version 1)
Quarter: 2013Q3

REPORT INFORMATION
  Report Type: Spontaneous
  Country: DE (occurrence: DE)
  Receive Date: 20130715
  Receipt Date: 20130715
  Transmission Date: 20140515
  Serious: Yes (Other)
  Sender: FDA-Public Use
  Company Number: DE-EISAI INC-E2007-01242-SPO-DE

PATIENT
  Age: 37 Year
  Sex: Male

DRUGS (1)
  1. FYCOMPA (PERAMPANEL) [Suspect]
     Indication: GRAND MAL CONVULSION
     Route: 048

REACTIONS (2)
  - Atonic seizures [Not Recovered/Not Resolved]
  - Off label use [Not Recovered/Not Resolved]
